FAERS Safety Report 18229728 (Version 1)
Quarter: 2020Q3

REPORT INFORMATION
  Report Type: Spontaneous
  Country: IN (occurrence: IN)
  Receive Date: 20200903
  Receipt Date: 20200903
  Transmission Date: 20201103
  Serious: Yes (Life-Threatening)
  Sender: FDA-Public Use
  Company Number: IN-FRESENIUS KABI-FK202009009

PATIENT
  Age: 62 Year
  Sex: Male

DRUGS (1)
  1. HALOPERIDOL INJECTION (MANUFACTURER UNKNOWN) [Suspect]
     Active Substance: HALOPERIDOL LACTATE
     Indication: DELIRIUM
     Route: 042

REACTIONS (2)
  - Cardiac arrest [Unknown]
  - Ventricular tachycardia [Unknown]
